FAERS Safety Report 9333457 (Version 2)
Quarter: 2013Q2

REPORT INFORMATION
  Report Type: Spontaneous
  Country: US (occurrence: None)
  Receive Date: 20130604
  Receipt Date: 20130619
  Transmission Date: 20140414
  Serious: Yes (Other)
  Sender: FDA-Public Use
  Company Number: US-ZYDUS-001254

PATIENT
  Age: 52 Year
  Sex: Male

DRUGS (2)
  1. AZATHIOPRINE [Suspect]
  2. INFLIXIMAB [Suspect]
     Dosage: 5.00 MG/KG-6.0 WEEKS

REACTIONS (4)
  - Epstein-Barr viraemia [None]
  - Lymphoma [None]
  - Lymphoma [None]
  - Hodgkin^s disease [None]
